FAERS Safety Report 16207595 (Version 1)
Quarter: 2019Q2

REPORT INFORMATION
  Report Type: Spontaneous
  Country: US (occurrence: US)
  Receive Date: 20190314
  Receipt Date: 20190314
  Transmission Date: 20190711
  Serious: No
  Sender: FDA-Public Use
  Company Number: None

PATIENT
  Age: 52 Year
  Sex: Male

DRUGS (1)
  1. CYCLOSPORINE CAP 100MG [Suspect]
     Active Substance: CYCLOSPORINE
     Dates: start: 20181127, end: 20190110

REACTIONS (2)
  - Renal disorder [None]
  - Therapy cessation [None]

NARRATIVE: CASE EVENT DATE: 20190110
